FAERS Safety Report 9125267 (Version 2)
Quarter: 2013Q1

REPORT INFORMATION
  Report Type: Spontaneous
  Country: US (occurrence: US)
  Receive Date: 20130121
  Receipt Date: 20130327
  Transmission Date: 20140127
  Serious: Yes (Death)
  Sender: FDA-Public Use
  Company Number: US-GILEAD-2013-0068089

PATIENT
  Age: 70 Year
  Sex: Female

DRUGS (8)
  1. LETAIRIS [Suspect]
     Indication: PULMONARY ARTERIAL HYPERTENSION
     Dosage: 10 MG, QD
     Route: 048
     Dates: start: 200906, end: 201301
  2. LETAIRIS [Suspect]
     Indication: SCLERODERMA
  3. TREPROSTINIL [Concomitant]
  4. VIAGRA [Concomitant]
  5. WELLBUTRIN XR [Concomitant]
  6. ZOCOR [Concomitant]
  7. LASIX                              /00032601/ [Concomitant]
  8. ROBAXIN [Concomitant]

REACTIONS (2)
  - Right ventricular failure [Fatal]
  - Pulmonary arterial hypertension [Fatal]
